FAERS Safety Report 9783349 (Version 2)
Quarter: 2014Q1

REPORT INFORMATION
  Report Type: Spontaneous
  Country: GB (occurrence: GB)
  Receive Date: 20131226
  Receipt Date: 20140116
  Transmission Date: 20141002
  Serious: Yes (Hospitalization, Congenital Anomaly, Other)
  Sender: FDA-Public Use
  Company Number: GB-TEVA-451456ISR

PATIENT
  Age: 1 Year
  Sex: Male
  Weight: 3.4 kg

DRUGS (16)
  1. HALOPERIDOL [Suspect]
     Indication: SCHIZOPHRENIA, PARANOID TYPE
     Dosage: 10 MILLIGRAM DAILY;
     Route: 064
     Dates: start: 20111229, end: 20120104
  2. HALOPERIDOL [Suspect]
     Dosage: 15 MILLIGRAM DAILY;
     Route: 064
     Dates: start: 20120105, end: 20120109
  3. ZOPICLONE [Suspect]
     Indication: INSOMNIA
     Route: 064
     Dates: start: 20120210, end: 20120718
  4. ZOPICLONE [Suspect]
     Indication: SLEEP DISORDER
  5. OLANZAPINE [Suspect]
     Dosage: 5 MILLIGRAM DAILY;
     Route: 064
     Dates: start: 20120112, end: 20120114
  6. RISPERDAL [Suspect]
     Indication: SCHIZOPHRENIA, PARANOID TYPE
     Dosage: 6 MILLIGRAM DAILY;
     Route: 064
     Dates: start: 20120308, end: 20120609
  7. RISPERDAL [Suspect]
     Indication: SCHIZOPHRENIA, PARANOID TYPE
     Route: 064
     Dates: start: 20120221, end: 20120307
  8. RISPERDAL [Suspect]
     Indication: SCHIZOPHRENIA, PARANOID TYPE
     Route: 064
     Dates: start: 20120609, end: 20120821
  9. PROMETHAZINE [Suspect]
     Route: 064
     Dates: start: 20111216
  10. SENNA [Suspect]
     Route: 064
     Dates: start: 20120116
  11. CYCLIZINE [Suspect]
     Route: 064
     Dates: start: 20111228, end: 20120131
  12. CHLORPROMAZINE [Suspect]
     Indication: SCHIZOPHRENIA, PARANOID TYPE
     Dosage: 600 MILLIGRAM DAILY;
     Route: 064
     Dates: start: 20120109, end: 20120114
  13. CHLORPROMAZINE [Suspect]
     Indication: SCHIZOPHRENIA, PARANOID TYPE
     Dosage: 75 MILLIGRAM DAILY;
     Route: 064
     Dates: start: 20111215, end: 20111219
  14. ALCOHOL [Suspect]
     Route: 064
  15. ENTONOX [Suspect]
     Indication: ANALGESIC THERAPY
     Route: 064
     Dates: start: 20120718, end: 20120718
  16. SYNTOMETRINE [Suspect]
     Dosage: 1 AMP
     Route: 064
     Dates: start: 20120718, end: 20120718

REACTIONS (5)
  - Foetal alcohol syndrome [Unknown]
  - Dextrocardia [Unknown]
  - Visual impairment [Unknown]
  - Drug withdrawal syndrome [Unknown]
  - Foetal exposure during pregnancy [Recovered/Resolved]
